FAERS Safety Report 9723661 (Version 1)
Quarter: 2013Q4

REPORT INFORMATION
  Report Type: Spontaneous
  Country: GB (occurrence: GB)
  Receive Date: 20131202
  Receipt Date: 20131202
  Transmission Date: 20140711
  Serious: Yes (Death)
  Sender: FDA-Public Use
  Company Number: GB-GLAXOSMITHKLINE-B0947064A

PATIENT
  Sex: 0

DRUGS (12)
  1. PAROXETINE [Suspect]
     Indication: DEPRESSED MOOD
     Route: 048
  2. ZAPONEX [Suspect]
     Indication: SCHIZOPHRENIA
     Dosage: 1248500MG CUMULATIVE DOSE
     Route: 048
     Dates: start: 20070219, end: 20130507
  3. ZAPONEX [Suspect]
     Dosage: 1248500MG CUMULATIVE DOSE
     Route: 048
     Dates: start: 20041112, end: 200702
  4. HYOSCINE [Suspect]
     Indication: SALIVARY HYPERSECRETION
     Route: 048
  5. EPILIM [Suspect]
     Route: 048
     Dates: start: 2007
  6. DIAZEPAM [Suspect]
     Indication: ANXIETY
     Route: 048
     Dates: start: 2007
  7. ZOPICLONE [Suspect]
     Indication: INSOMNIA
     Route: 048
     Dates: start: 2007
  8. ETHANOL [Suspect]
     Route: 048
  9. LANSOPRAZOLE [Concomitant]
     Indication: ABDOMINAL PAIN UPPER
     Route: 048
  10. DOCUSATE SODIUM + SENNOSIDES [Concomitant]
     Indication: CONSTIPATION
     Route: 048
  11. PROCYCLIDINE [Concomitant]
     Indication: EXTRAPYRAMIDAL DISORDER
     Route: 048
     Dates: start: 2007
  12. CO-CODAMOL [Concomitant]
     Indication: BACK PAIN
     Dates: start: 201304

REACTIONS (7)
  - Pulmonary oedema [Not Recovered/Not Resolved]
  - Gastritis erosive [Not Recovered/Not Resolved]
  - Lower respiratory tract infection [Not Recovered/Not Resolved]
  - Toxicity to various agents [Fatal]
  - Arteriosclerosis [Not Recovered/Not Resolved]
  - Drug interaction [Not Recovered/Not Resolved]
  - Alcohol interaction [Not Recovered/Not Resolved]
